FAERS Safety Report 10037141 (Version 1)
Quarter: 2014Q1

REPORT INFORMATION
  Report Type: Spontaneous
  Country: GB (occurrence: GB)
  Receive Date: 20140326
  Receipt Date: 20140326
  Transmission Date: 20141002
  Serious: Yes (Other)
  Sender: FDA-Public Use
  Company Number: GB-AMGEN-GBRSP2014019873

PATIENT
  Age: 93 Year
  Sex: Female

DRUGS (5)
  1. ARANESP [Suspect]
     Indication: ANAEMIA
     Dosage: 20 MUG, QWK
     Route: 065
  2. PARACETAMOL [Concomitant]
     Route: 065
  3. ADCAL                              /07357001/ [Concomitant]
     Route: 065
  4. ASPIRIN [Concomitant]
     Route: 065
  5. LANSOPRAZOLE [Concomitant]
     Route: 065

REACTIONS (5)
  - Cyanosis [Unknown]
  - Pallor [Unknown]
  - Contusion [Unknown]
  - Renal disorder [Unknown]
  - Mobility decreased [Unknown]
